FAERS Safety Report 17353109 (Version 1)
Quarter: 2020Q1

REPORT INFORMATION
  Report Type: Spontaneous
  Country: US (occurrence: US)
  Receive Date: 20200131
  Receipt Date: 20200131
  Transmission Date: 20200409
  Serious: Yes (Hospitalization)
  Sender: FDA-Public Use
  Company Number: US-ZYDUS-046926

PATIENT
  Age: 48 Year
  Sex: Female

DRUGS (1)
  1. DOXYCYCLINE. [Suspect]
     Active Substance: DOXYCYCLINE
     Indication: LEPTOSPIROSIS

REACTIONS (5)
  - Asthenia [Unknown]
  - Fatigue [Unknown]
  - Myalgia [Unknown]
  - Jarisch-Herxheimer reaction [Unknown]
  - Oropharyngeal pain [Unknown]
